FAERS Safety Report 9820633 (Version 6)
Quarter: 2014Q4

REPORT INFORMATION
  Report Type: Report from Study
  Country: JP (occurrence: JP)
  Receive Date: 20140116
  Receipt Date: 20141024
  Transmission Date: 20150529
  Serious: Yes (Hospitalization)
  Sender: FDA-Public Use
  Company Number: JP-ROCHE-1330667

PATIENT
  Age: 66 Year
  Sex: Male
  Weight: 53.8 kg

DRUGS (21)
  1. MOSAPRIDE CITRATE [Concomitant]
     Active Substance: MOSAPRIDE CITRATE
     Indication: ABDOMINAL DISCOMFORT
     Route: 065
     Dates: start: 20131225, end: 20140106
  2. PALONOSETRON HYDROCHLORIDE [Concomitant]
     Active Substance: PALONOSETRON HYDROCHLORIDE
     Indication: PREMEDICATION
     Route: 065
     Dates: start: 20131121, end: 20140214
  3. VINCRISTINE [Suspect]
     Active Substance: VINCRISTINE
     Indication: DIFFUSE LARGE B-CELL LYMPHOMA
     Dosage: DOSE OF LAST VINCRISTINE TAKEN: 2 MG?DATE OF MOST RECENT DOSE OF VINCRISTINE PRIOR TO AE ONSET: 16/D
     Route: 040
     Dates: start: 20131121
  4. MAGNESIUM OXIDE. [Concomitant]
     Active Substance: MAGNESIUM OXIDE
     Indication: CONSTIPATION
     Route: 065
     Dates: start: 20131126, end: 20131202
  5. PREDNISOLONE. [Suspect]
     Active Substance: PREDNISOLONE
     Indication: DIFFUSE LARGE B-CELL LYMPHOMA
     Dosage: DOSE OF LAST PREDNISOLONE: 100 MG?DATE OF MOST RECENT DOSE OF PREDNISOLONE PRIOR TO AE ONSET: 20/DEC
     Route: 048
     Dates: start: 20131121
  6. LULICONAZOLE [Concomitant]
     Active Substance: LULICONAZOLE
     Route: 065
     Dates: start: 20140121
  7. TERBINAFINE HYDROCHLORIDE. [Concomitant]
     Active Substance: TERBINAFINE HYDROCHLORIDE
     Route: 065
     Dates: start: 20140121
  8. RITUXIMAB [Suspect]
     Active Substance: RITUXIMAB
     Indication: DIFFUSE LARGE B-CELL LYMPHOMA
     Dosage: VOLUME OF LAST RITUXIMAB TAKEN: 581.25 ML?DOSE CONCENTRATION OF LAST RITUXIMAB TAKEN: 1 MG/ML?DATE O
     Route: 042
     Dates: start: 20131121
  9. MAGNESIUM OXIDE. [Concomitant]
     Active Substance: MAGNESIUM OXIDE
     Route: 065
     Dates: start: 20131225
  10. SENNOSIDE [Concomitant]
     Active Substance: SENNOSIDES
     Route: 065
     Dates: start: 20131216, end: 20131218
  11. REBAMIPIDE [Concomitant]
     Active Substance: REBAMIPIDE
     Indication: GASTRITIS PROPHYLAXIS
     Route: 065
     Dates: start: 20140108
  12. CYCLOPHOSPHAMIDE. [Suspect]
     Active Substance: CYCLOPHOSPHAMIDE
     Indication: DIFFUSE LARGE B-CELL LYMPHOMA
     Dosage: DOSE OF LAST CYCLOPHOSPHAMIDE TAKEN: 1162.5 MG?DATE OF MOST RECENT DOSE OF CYCLOPHOSPHAMIDE PRIOR TO
     Route: 042
     Dates: start: 20131121
  13. ALLOPURINOL. [Concomitant]
     Active Substance: ALLOPURINOL
     Indication: PREMEDICATION
     Route: 065
     Dates: start: 20131121, end: 20131125
  14. SENNOSIDE [Concomitant]
     Active Substance: SENNOSIDES
     Indication: CONSTIPATION
     Route: 065
     Dates: start: 20131128, end: 20131202
  15. GRANISETRON HYDROCHLORIDE. [Concomitant]
     Active Substance: GRANISETRON HYDROCHLORIDE
     Route: 065
     Dates: start: 20140307, end: 20140328
  16. ACETAMINOPHEN. [Concomitant]
     Active Substance: ACETAMINOPHEN
     Indication: PREMEDICATION
     Route: 065
     Dates: start: 20131121, end: 20140509
  17. SENNOSIDE [Concomitant]
     Active Substance: SENNOSIDES
     Route: 065
     Dates: start: 20131221, end: 20140516
  18. MOSAPRIDE CITRATE [Concomitant]
     Active Substance: MOSAPRIDE CITRATE
     Route: 065
     Dates: start: 20130107
  19. TERBINAFINE HYDROCHLORIDE. [Concomitant]
     Active Substance: TERBINAFINE HYDROCHLORIDE
     Route: 065
     Dates: start: 20140120
  20. MEQUITAZINE [Concomitant]
     Active Substance: MEQUITAZINE
     Indication: PREMEDICATION
     Route: 065
     Dates: start: 20131121, end: 20140509
  21. DOXORUBICIN [Suspect]
     Active Substance: DOXORUBICIN
     Indication: DIFFUSE LARGE B-CELL LYMPHOMA
     Dosage: DOSE OF LAST DOXORUBICIN TAKEN: 77.5 MG?DATE OF MOST RECENT DOSE OF DOXORUBICIN PRIOR TO AE ONSET: 1
     Route: 042
     Dates: start: 20131121

REACTIONS (1)
  - Anal fistula [Recovered/Resolved]

NARRATIVE: CASE EVENT DATE: 20131225
